FAERS Safety Report 9780572 (Version 2)
Quarter: 2013Q4

REPORT INFORMATION
  Report Type: Spontaneous
  Country: US (occurrence: US)
  Receive Date: 20131224
  Receipt Date: 20131227
  Transmission Date: 20140711
  Serious: Yes (Hospitalization, Other)
  Sender: FDA-Public Use
  Company Number: US-009507513-1312USA009951

PATIENT
  Age: 45 Year
  Sex: Female

DRUGS (3)
  1. JANUMET [Suspect]
     Indication: DIABETES MELLITUS
     Dosage: JANUMET TABLET 50/1000
     Route: 048
     Dates: start: 201309
  2. [THERAPY UNSPECIFIED] [Concomitant]
  3. ONGLYZA [Concomitant]
     Indication: TYPE 2 DIABETES MELLITUS
     Dosage: UNK
     Dates: start: 201312

REACTIONS (4)
  - Pancreatitis [Unknown]
  - Diabetes mellitus [Unknown]
  - Dyslipidaemia [Unknown]
  - Treatment noncompliance [Unknown]
